FAERS Safety Report 11193715 (Version 1)
Quarter: 2015Q2

REPORT INFORMATION
  Report Type: Spontaneous
  Country: US (occurrence: US)
  Receive Date: 20150616
  Receipt Date: 20150616
  Transmission Date: 20150821
  Serious: Yes (Hospitalization, Other)
  Sender: FDA-Public Use
  Company Number: US-009507513-1203USA02816

PATIENT
  Sex: Female

DRUGS (1)
  1. FOSAMAX [Suspect]
     Active Substance: ALENDRONATE SODIUM
     Indication: BONE DENSITY DECREASED
     Dosage: 70 MG, UNK
     Route: 048
     Dates: start: 200310, end: 200905

REACTIONS (12)
  - Surgery [Unknown]
  - Hip arthroplasty [Unknown]
  - Staphylococcal infection [Unknown]
  - Gastrooesophageal reflux disease [Unknown]
  - Debridement [Unknown]
  - Vascular operation [Unknown]
  - Intramedullary rod insertion [Unknown]
  - Removal of internal fixation [Unknown]
  - Osteoporosis [Unknown]
  - Hip arthroplasty [Unknown]
  - Femur fracture [Unknown]
  - Osteomyelitis [Unknown]

NARRATIVE: CASE EVENT DATE: 20060824
